FAERS Safety Report 10342746 (Version 2)
Quarter: 2015Q1

REPORT INFORMATION
  Report Type: Spontaneous
  Country: US (occurrence: None)
  Receive Date: 20140723
  Receipt Date: 20150327
  Transmission Date: 20150720
  Serious: Yes (Hospitalization)
  Sender: FDA-Public Use
  Company Number: 201407042

PATIENT
  Sex: Male
  Weight: 106.6 kg

DRUGS (2)
  1. TESTIM [Suspect]
     Active Substance: TESTOSTERONE
     Indication: BLOOD TESTOSTERONE DECREASED
     Dates: start: 20120628
  2. ANDROGEL [Suspect]
     Active Substance: TESTOSTERONE
     Indication: BLOOD TESTOSTERONE DECREASED
     Dates: start: 20101117

REACTIONS (10)
  - Economic problem [None]
  - Acute respiratory failure [None]
  - Pneumonia [None]
  - Systolic dysfunction [None]
  - Pulmonary oedema [None]
  - Myocardial infarction [None]
  - Coronary artery disease [None]
  - Ejection fraction decreased [None]
  - Injury [None]
  - Coronary artery stenosis [None]

NARRATIVE: CASE EVENT DATE: 20120709
